FAERS Safety Report 22226589 (Version 5)
Quarter: 2024Q1

REPORT INFORMATION
  Report Type: Report from Study
  Country: US (occurrence: US)
  Receive Date: 20230419
  Receipt Date: 20240207
  Transmission Date: 20240410
  Serious: Yes (Hospitalization)
  Sender: FDA-Public Use
  Company Number: US-ABBVIE-4732422

PATIENT
  Sex: Female

DRUGS (2)
  1. SKYRIZI [Suspect]
     Active Substance: RISANKIZUMAB-RZAA
     Indication: Psoriasis
     Route: 058
     Dates: start: 20230411
  2. SKYRIZI [Suspect]
     Active Substance: RISANKIZUMAB-RZAA
     Dosage: END DATE IN 2023
     Route: 058
     Dates: start: 20230324

REACTIONS (12)
  - Dehydration [Unknown]
  - Diabetes mellitus [Recovering/Resolving]
  - Diabetes mellitus [Recovered/Resolved]
  - Dyspnoea [Unknown]
  - Limb mass [Unknown]
  - Peripheral swelling [Unknown]
  - Blood potassium increased [Unknown]
  - Dizziness [Unknown]
  - Renal impairment [Unknown]
  - Heart rate decreased [Unknown]
  - Renal disorder [Recovered/Resolved]
  - Peripheral swelling [Unknown]

NARRATIVE: CASE EVENT DATE: 20230101
